FAERS Safety Report 4404111-6 (Version None)
Quarter: 2004Q3

REPORT INFORMATION
  Report Type: 
  Country: None (occurrence: None)
  Receive Date: 20040719
  Receipt Date: 20040525
  Transmission Date: 20050211
  Serious: Yes (Other)
  Sender: FDA-Public Use
  Company Number: 368692

PATIENT

DRUGS (1)
  1. NEOTIGASON (ACITRETIN) [Suspect]
     Dosage: ORAL
     Route: 048
     Dates: end: 20030815

REACTIONS (1)
  - PREGNANCY [None]
